FAERS Safety Report 7810679-X (Version None)
Quarter: 2011Q4

REPORT INFORMATION
  Report Type: 
  Country: None (occurrence: None)
  Receive Date: 20111013
  Receipt Date: 20091117
  Transmission Date: 20120403
  Serious: No
  Sender: FDA-Public Use
  Company Number: 2009BI037553

PATIENT
  Age: 45 Year
  Sex: Female

DRUGS (1)
  1. TYSABRI [Suspect]
     Indication: MULTIPLE SCLEROSIS
     Route: 042
     Dates: start: 20080130

REACTIONS (5)
  - SUDDEN ONSET OF SLEEP [None]
  - CONFUSIONAL STATE [None]
  - COGNITIVE DISORDER [None]
  - GENERAL SYMPTOM [None]
  - INSOMNIA [None]
